FAERS Safety Report 5513728-7 (Version None)
Quarter: 2007Q4

REPORT INFORMATION
  Report Type: 
  Country: None (occurrence: None)
  Receive Date: 20071106
  Receipt Date: 20061102
  Transmission Date: 20080405
  Serious: Yes (Disabling, Other)
  Sender: FDA-Public Use
  Company Number: US-JNJFOC-20061101542

PATIENT
  Age: 27 Year
  Sex: Male

DRUGS (8)
  1. MOTRIN [Suspect]
     Indication: BACK PAIN
     Dosage: 600 MG, 3 IN 1 DAY, ORAL ; 600 MG, 3 IN 1 DAY, ORAL
     Route: 048
     Dates: start: 19950329, end: 19950415
  2. MOTRIN [Suspect]
     Indication: SWELLING
     Dosage: 600 MG, 3 IN 1 DAY, ORAL ; 600 MG, 3 IN 1 DAY, ORAL
     Route: 048
     Dates: start: 19950329, end: 19950415
  3. MOTRIN [Suspect]
     Indication: BACK PAIN
     Dosage: 600 MG, 3 IN 1 DAY, ORAL ; 600 MG, 3 IN 1 DAY, ORAL
     Route: 048
     Dates: start: 19950424, end: 19950523
  4. MOTRIN [Suspect]
     Indication: SWELLING
     Dosage: 600 MG, 3 IN 1 DAY, ORAL ; 600 MG, 3 IN 1 DAY, ORAL
     Route: 048
     Dates: start: 19950424, end: 19950523
  5. PROCARDIA [Concomitant]
  6. FLEXERIL [Concomitant]
  7. HYDRALAZINE HCL [Concomitant]
  8. NORVASC [Concomitant]

REACTIONS (3)
  - HAEMATEMESIS [None]
  - HYPERTENSION [None]
  - RENAL FAILURE ACUTE [None]
